FAERS Safety Report 16724045 (Version 1)
Quarter: 2019Q3

REPORT INFORMATION
  Report Type: Spontaneous
  Country: GB (occurrence: GB)
  Receive Date: 20190821
  Receipt Date: 20190821
  Transmission Date: 20191005
  Serious: Yes (Hospitalization)
  Sender: FDA-Public Use
  Company Number: GB-ACCORD-152165

PATIENT
  Age: 87 Year
  Sex: Female

DRUGS (12)
  1. INDAPAMIDE. [Concomitant]
     Active Substance: INDAPAMIDE
  2. CODEINE PHOSPHATE/PARACETAMOL [Concomitant]
  3. ACETYLSALICYLIC ACID [Concomitant]
     Active Substance: ASPIRIN
  4. SODIUM FEREDETATE [Concomitant]
     Active Substance: SODIUM FEREDETATE
  5. RANITIDINE. [Concomitant]
     Active Substance: RANITIDINE
  6. ENOXAPARIN [Concomitant]
     Active Substance: ENOXAPARIN
  7. LACTULOSE. [Concomitant]
     Active Substance: LACTULOSE
  8. OMEPRAZOLE. [Concomitant]
     Active Substance: OMEPRAZOLE
     Dosage: WITHHELD REPLACE WITH RANITIDINE
  9. LAXIDO [Concomitant]
     Active Substance: POLYETHYLENE GLYCOL 3350\POTASSIUM CHLORIDE\SODIUM BICARBONATE\SODIUM CHLORIDE
  10. CO-AMOXICLAV [Concomitant]
     Active Substance: AMOXICILLIN\CLAVULANATE POTASSIUM
  11. TRIMETHOPRIM. [Concomitant]
     Active Substance: TRIMETHOPRIM
  12. SERTRALINE [Suspect]
     Active Substance: SERTRALINE HYDROCHLORIDE
     Indication: DEPRESSION
     Dosage: IN THE MORNING
     Route: 048
     Dates: start: 20190521, end: 20190604

REACTIONS (5)
  - Confusional state [Recovering/Resolving]
  - General physical health deterioration [Unknown]
  - Microcytic anaemia [Unknown]
  - Urinary tract infection [Unknown]
  - Hyponatraemia [Recovering/Resolving]

NARRATIVE: CASE EVENT DATE: 20190603
